FAERS Safety Report 9060651 (Version 3)
Quarter: 2013Q2

REPORT INFORMATION
  Report Type: Report from Study
  Country: US (occurrence: US)
  Receive Date: 20130212
  Receipt Date: 20130617
  Transmission Date: 20140414
  Serious: Yes (Life-Threatening, Hospitalization)
  Sender: FDA-Public Use
  Company Number: US-B.I. PHARMACEUTICALS,INC./RIDGEFIELD-2013-RU-00166BP

PATIENT
  Age: 63 Year
  Sex: Male
  Weight: 84.1 kg

DRUGS (6)
  1. PRADAXA [Suspect]
     Indication: CEREBROVASCULAR ACCIDENT PROPHYLAXIS
     Dates: start: 20121115, end: 20130203
  2. PRADAXA [Suspect]
     Indication: ATRIAL FIBRILLATION
  3. TRIAL PROCEDURE [Suspect]
     Indication: CEREBROVASCULAR ACCIDENT PROPHYLAXIS
  4. TRIAL PROCEDURE [Suspect]
     Indication: ATRIAL FIBRILLATION
  5. AMIODARONE [Suspect]
     Indication: ATRIAL FIBRILLATION
     Dosage: 200 MG
     Route: 048
     Dates: start: 20130206
  6. ASPIRIN [Concomitant]
     Indication: CORONARY ARTERY DISEASE
     Dosage: 325 MG
     Route: 048
     Dates: start: 20130206

REACTIONS (5)
  - Pericardial effusion [Recovered/Resolved]
  - Cardiac tamponade [Recovered/Resolved]
  - Atrial tachycardia [Recovered/Resolved]
  - Hypotension [Recovered/Resolved]
  - Headache [Recovered/Resolved]
